FAERS Safety Report 6900966-1 (Version None)
Quarter: 2010Q3

REPORT INFORMATION
  Report Type: 
  Country: None (occurrence: None)
  Receive Date: 20100803
  Receipt Date: 20100726
  Transmission Date: 20110219
  Serious: Yes (Other)
  Sender: FDA-Public Use
  Company Number: A0873526A

PATIENT
  Sex: Male

DRUGS (1)
  1. VOTRIENT [Suspect]
     Dosage: 800MGD PER DAY
     Route: 048
     Dates: start: 20091207, end: 20100301

REACTIONS (1)
  - MALIGNANT NEOPLASM PROGRESSION [None]
